FAERS Safety Report 16365693 (Version 9)
Quarter: 2020Q1

REPORT INFORMATION
  Report Type: Spontaneous
  Country: DE (occurrence: DE)
  Receive Date: 20190529
  Receipt Date: 20200317
  Transmission Date: 20200409
  Serious: Yes (Congenital Anomaly, Other)
  Sender: FDA-Public Use
  Company Number: DE-AUROBINDO-AUR-APL-2019-029459

PATIENT
  Age: 12 Week
  Sex: Male
  Weight: 2.8 kg

DRUGS (22)
  1. TENOFOVIR DISOPROXIL FILM COATED TABLETS [Suspect]
     Active Substance: TENOFOVIR DISOPROXIL
     Dosage: UNK, PRIOR TO CONCEPTION TO DELIVERY
     Route: 064
     Dates: start: 20040729
  2. TENOFOVIR DISOPROXIL FILM COATED TABLETS [Suspect]
     Active Substance: TENOFOVIR DISOPROXIL
     Dosage: 300 MILLIGRAM, ONCE A DAY
     Route: 064
     Dates: start: 20040729
  3. EPIVIR [Suspect]
     Active Substance: LAMIVUDINE
     Indication: PRODUCT USED FOR UNKNOWN INDICATION
     Dosage: 300 MILLIGRAM, ONCE A DAY
     Route: 064
     Dates: start: 20040729, end: 20050216
  4. NORVIR [Suspect]
     Active Substance: RITONAVIR
     Indication: PRODUCT USED FOR UNKNOWN INDICATION
     Dosage: 400 MILLIGRAM, ONCE A DAY
     Route: 064
  5. NORVIR [Suspect]
     Active Substance: RITONAVIR
     Dosage: UNK
     Route: 064
  6. FUZEON [Suspect]
     Active Substance: ENFUVIRTIDE
     Indication: ANTIVIRAL TREATMENT
     Dosage: UNK, (EXPOSURE DATES: 35 WEEKS TO DELIVERY
     Route: 064
     Dates: start: 20050322, end: 20050331
  7. ALCOHOL. [Suspect]
     Active Substance: ALCOHOL
     Indication: PRODUCT USED FOR UNKNOWN INDICATION
     Dosage: UNK, 1 {TRIMESTER}
     Route: 064
  8. LAMIVUDINE AND ZIDOVUDINE [Suspect]
     Active Substance: LAMIVUDINE\ZIDOVUDINE
     Indication: PRODUCT USED FOR UNKNOWN INDICATION
     Dosage: 900 MILLIGRAM, ONCE A DAY
     Route: 064
  9. TENOFOVIR DISOPROXIL FILM COATED TABLETS [Suspect]
     Active Substance: TENOFOVIR DISOPROXIL
     Dosage: UNK
     Route: 064
  10. TENOFOVIR DISOPROXIL FILM COATED TABLETS [Suspect]
     Active Substance: TENOFOVIR DISOPROXIL
     Indication: ANTIVIRAL TREATMENT
     Dosage: UNK, 1 {TRIMESTER} (EXPOSURE DATES: PRIOR TO CONCEPTION TO DELIVER)
     Route: 064
     Dates: start: 20040729
  11. LAMIVUDINE. [Suspect]
     Active Substance: LAMIVUDINE
     Indication: PRODUCT USED FOR UNKNOWN INDICATION
     Dosage: 300 MILLIGRAM, ONCE A DAY
     Route: 064
     Dates: start: 20040729, end: 20050216
  12. TENOFOVIR DISOPROXIL FILM COATED TABLETS [Suspect]
     Active Substance: TENOFOVIR DISOPROXIL
     Dosage: 300 MILLIGRAM, ONCE A DAY
     Route: 064
  13. VIREAD [Suspect]
     Active Substance: TENOFOVIR DISOPROXIL FUMARATE
     Dosage: UNK
     Route: 064
  14. EPIVIR [Suspect]
     Active Substance: LAMIVUDINE
     Dosage: UNK
     Route: 064
  15. VIREAD [Suspect]
     Active Substance: TENOFOVIR DISOPROXIL FUMARATE
     Indication: PRODUCT USED FOR UNKNOWN INDICATION
     Dosage: 300 MILLIGRAM, ONCE A DAY
     Route: 064
  16. RITONAVIR. [Suspect]
     Active Substance: RITONAVIR
     Dosage: 400 MILLIGRAM, ONCE A DAY
     Route: 064
  17. COMBIVIR [Suspect]
     Active Substance: LAMIVUDINE\ZIDOVUDINE
     Indication: PRODUCT USED FOR UNKNOWN INDICATION
     Dosage: 900 MILLIGRAM, ONCE A DAY
     Route: 064
  18. INVIRASE [Suspect]
     Active Substance: SAQUINAVIR MESYLATE
     Indication: ANTIVIRAL TREATMENT
     Dosage: UNK, (EXPOSURE DATES: PRIOR TO CONCEPTION TO 30 WEEKS)
     Route: 064
     Dates: end: 20050218
  19. RITONAVIR. [Suspect]
     Active Substance: RITONAVIR
     Indication: ANTIVIRAL TREATMENT
     Dosage: UNK, (EXPOSURE DATES: PRIOR TO CONCEPTION TO 30 WEEKS)
     Route: 064
     Dates: start: 20040729, end: 20050216
  20. COMBIVIR [Suspect]
     Active Substance: LAMIVUDINE\ZIDOVUDINE
     Dosage: UNK
     Route: 064
  21. 3TC [Suspect]
     Active Substance: LAMIVUDINE
     Indication: ANTIVIRAL TREATMENT
     Dosage: UNK,PRIOR TO CONCEPTION TO 30 WEEKS
     Route: 064
     Dates: start: 20040729, end: 20050216
  22. ZALCITABINE [Suspect]
     Active Substance: ZALCITABINE
     Indication: ANTIVIRAL TREATMENT
     Dosage: UNK, (EXPOSURE DATES: 30 WEEKS TO DELIVERY)
     Route: 064
     Dates: start: 20050216

REACTIONS (2)
  - Congenital diaphragmatic hernia [Unknown]
  - Foetal exposure during pregnancy [Recovered/Resolved]

NARRATIVE: CASE EVENT DATE: 20060718
